FAERS Safety Report 4377211-7 (Version None)
Quarter: 2004Q2

REPORT INFORMATION
  Report Type: 
  Country: None (occurrence: None)
  Receive Date: 20040609
  Receipt Date: 20040212
  Transmission Date: 20050107
  Serious: No
  Sender: FDA-Public Use
  Company Number: 2004199228US

PATIENT
  Age: 87 Year
  Sex: Male

DRUGS (4)
  1. BEXTRA [Suspect]
     Indication: SURGERY
     Dosage: 10 MG, QD
     Dates: start: 20040208
  2. DETROL [Concomitant]
  3. ALLEGRA (FEXOFANDINE HYDROCHLORIDE) [Concomitant]
  4. PLACIS (CLOPIODREL SULFATE) [Concomitant]

REACTIONS (2)
  - LIMB DISCOMFORT [None]
  - POLLAKIURIA [None]
